FAERS Safety Report 14713538 (Version 1)
Quarter: 2018Q2

REPORT INFORMATION
  Report Type: Spontaneous
  Country: BR (occurrence: BR)
  Receive Date: 20180404
  Receipt Date: 20180404
  Transmission Date: 20180711
  Serious: Yes (Other)
  Sender: FDA-Public Use
  Company Number: BR-ALVOGEN-2018-ALVOGEN-095714

PATIENT
  Age: 5 Year
  Sex: Female
  Weight: 26 kg

DRUGS (4)
  1. CALCIUM CHLORIDE/POTASSIUM CHLORIDE [Concomitant]
     Indication: HYPOTHERMIA
     Dosage: 10 ML.KG-1 IN THE FIRST HOUR AND 5 ML.KG-1 IN THE OTHERS
     Route: 042
  2. FENTANYL. [Suspect]
     Active Substance: FENTANYL
     Indication: GENERAL ANAESTHESIA
  3. SEVOFLURANE. [Suspect]
     Active Substance: SEVOFLURANE
     Indication: GENERAL ANAESTHESIA
     Route: 055
  4. ATRACURIUM [Suspect]
     Active Substance: ATRACURIUM
     Indication: GENERAL ANAESTHESIA

REACTIONS (2)
  - Hypothermia [Recovered/Resolved]
  - Livedo reticularis [Recovered/Resolved]
